FAERS Safety Report 9153355 (Version 1)
Quarter: 2013Q1

REPORT INFORMATION
  Report Type: Spontaneous
  Country: DK (occurrence: None)
  Receive Date: 20130204
  Receipt Date: 20130204
  Transmission Date: 20140127
  Serious: Yes (Hospitalization)
  Sender: FDA-Public Use
  Company Number: 2013MA000817

PATIENT
  Sex: Male
  Weight: 2.49 kg

DRUGS (4)
  1. BUTALBITAL,ASPIRINAND CAFFEINE50/325/40MG [Suspect]
     Route: 064
  2. FERROUS SULFATE [Suspect]
     Route: 064
  3. CEFALEXIN [Suspect]
     Route: 064
  4. NEORAL (CICLOSPORIN) [Suspect]
     Route: 064

REACTIONS (3)
  - Maternal drugs affecting foetus [None]
  - Premature baby [None]
  - Neonatal respiratory distress syndrome [None]
